FAERS Safety Report 8079612-2 (Version None)
Quarter: 2012Q1

REPORT INFORMATION
  Report Type: 
  Country: None (occurrence: None)
  Receive Date: 20120128
  Receipt Date: 20110803
  Transmission Date: 20120608
  Serious: No
  Sender: FDA-Public Use
  Company Number: US-ABBOTT-11P-163-0843400-00

PATIENT
  Sex: Female
  Weight: 89.438 kg

DRUGS (7)
  1. FLEXERIL [Concomitant]
     Indication: MUSCLE SPASMS
  2. HUMIRA [Suspect]
     Indication: PSORIATIC ARTHROPATHY
     Route: 058
     Dates: start: 20110701
  3. NORVASC [Concomitant]
     Indication: HYPERTENSION
  4. UNKNOWN STERIOD [Concomitant]
     Indication: PSORIATIC ARTHROPATHY
  5. OPANA ER [Concomitant]
     Indication: PAIN
  6. PROTONIX [Concomitant]
     Indication: GASTROOESOPHAGEAL REFLUX DISEASE
  7. DIAZEPAM [Concomitant]
     Indication: ANXIETY

REACTIONS (2)
  - LACERATION [None]
  - HAEMORRHAGE [None]
